FAERS Safety Report 10864579 (Version 1)
Quarter: 2015Q1

REPORT INFORMATION
  Report Type: Spontaneous
  Country: RS (occurrence: RS)
  Receive Date: 20150224
  Receipt Date: 20150224
  Transmission Date: 20150721
  Serious: Yes (Death, Other)
  Sender: FDA-Public Use
  Company Number: RS-PFIZER INC-2015065093

PATIENT
  Age: 28 Year
  Sex: Male

DRUGS (1)
  1. SULFASALAZINE. [Suspect]
     Active Substance: SULFASALAZINE
     Indication: ARTHRITIS
     Dosage: 500 MG, 3X/DAY

REACTIONS (10)
  - Oedema [Fatal]
  - Rash erythematous [Unknown]
  - Hypersensitivity [Unknown]
  - Metabolic acidosis [Unknown]
  - Cardiogenic shock [Fatal]
  - Pyrexia [Unknown]
  - Eosinophilic myocarditis [Fatal]
  - Dyspnoea [Unknown]
  - Lymphadenopathy [Unknown]
  - Malaise [Unknown]
